FAERS Safety Report 4303863-3 (Version None)
Quarter: 2004Q1

REPORT INFORMATION
  Report Type: 
  Country: None (occurrence: None)
  Receive Date: 20040225
  Receipt Date: 20040220
  Transmission Date: 20041129
  Serious: Yes (Hospitalization)
  Sender: FDA-Public Use
  Company Number: ES-GLAXOSMITHKLINE-A0499491A

PATIENT
  Age: 67 Year
  Sex: Female

DRUGS (1)
  1. NAVELBINE [Suspect]
     Indication: BREAST CANCER
     Dosage: 36.6MG SEE DOSAGE TEXT
     Route: 042
     Dates: start: 20030317

REACTIONS (2)
  - CELLULITIS [None]
  - EXTRAVASATION [None]
